FAERS Safety Report 6863505-X (Version None)
Quarter: 2010Q3

REPORT INFORMATION
  Report Type: 
  Country: None (occurrence: None)
  Receive Date: 20100721
  Receipt Date: 20100713
  Transmission Date: 20110219
  Serious: Yes (Hospitalization, Other)
  Sender: FDA-Public Use
  Company Number: BR-PFIZER INC-2010073963

PATIENT
  Age: 67 Year
  Sex: Female
  Weight: 58 kg

DRUGS (2)
  1. DETRUSITOL LA [Suspect]
     Indication: HYPERTONIC BLADDER
     Dosage: 4 MG, 1X/DAY, 1 TABLET
     Route: 048
     Dates: start: 20090801, end: 20100707
  2. COLECALCIFEROL [Concomitant]
     Dosage: UNK
     Dates: start: 20100301

REACTIONS (9)
  - CATARACT OPERATION [None]
  - CONFUSIONAL STATE [None]
  - CONVULSION [None]
  - DEPRESSION [None]
  - DYSPNOEA [None]
  - FATIGUE [None]
  - MALAISE [None]
  - OSTEOPOROSIS [None]
  - RESPIRATORY DISORDER [None]
